FAERS Safety Report 8567775-1 (Version None)
Quarter: 2012Q3

REPORT INFORMATION
  Report Type: 
  Country: None (occurrence: None)
  Receive Date: 20120803
  Receipt Date: 20120723
  Transmission Date: 20120928
  Serious: Yes (Other)
  Sender: FDA-Public Use
  Company Number: US-ELI_LILLY_AND_COMPANY-US201207007543

PATIENT
  Sex: Male

DRUGS (1)
  1. HUMULIN R [Suspect]
     Indication: DIABETES MELLITUS
     Dosage: UNK, PRN
     Dates: start: 19970101

REACTIONS (11)
  - MALAISE [None]
  - WEIGHT DECREASED [None]
  - BLOOD GLUCOSE FLUCTUATION [None]
  - BLOOD GLUCOSE INCREASED [None]
  - DIABETIC NEUROPATHY [None]
  - ASTHENIA [None]
  - PYREXIA [None]
  - NASOPHARYNGITIS [None]
  - FOOT OPERATION [None]
  - DECREASED APPETITE [None]
  - INSULIN RESISTANT DIABETES [None]
